FAERS Safety Report 8925067 (Version 1)
Quarter: 2012Q4

REPORT INFORMATION
  Report Type: 
  Country: AT (occurrence: AT)
  Receive Date: 20121126
  Receipt Date: 20121126
  Transmission Date: 20130627
  Serious: Yes (Hospitalization, Other)
  Sender: FDA-Public Use
  Company Number: AT-ELI_LILLY_AND_COMPANY-AT201211004692

PATIENT
  Sex: Male
  Weight: 72 kg

DRUGS (4)
  1. EFIENT [Suspect]
     Indication: ANGINA PECTORIS
     Dosage: 60 mg, single
     Route: 048
     Dates: start: 20101112, end: 20101112
  2. EFIENT [Suspect]
     Dosage: 10 mg, qd
     Route: 048
     Dates: start: 20101113, end: 20111112
  3. ASPIRIN [Concomitant]
     Dosage: 300-500mg loading dose
  4. ASPIRIN [Concomitant]
     Dosage: 100 mg, qd

REACTIONS (6)
  - Loss of consciousness [Recovered/Resolved]
  - Facial bones fracture [Recovered/Resolved]
  - Fall [Recovered/Resolved]
  - Haemorrhage [Recovered/Resolved]
  - Anaemia [Recovered/Resolved]
  - Traumatic haematoma [Recovered/Resolved]
